FAERS Safety Report 6512069-9 (Version None)
Quarter: 2009Q4

REPORT INFORMATION
  Report Type: 
  Country: None (occurrence: None)
  Receive Date: 20091222
  Receipt Date: 20090526
  Transmission Date: 20100525
  Serious: No
  Sender: FDA-Public Use
  Company Number: US-ASTRAZENECA-2009UW13508

PATIENT
  Age: 70 Year
  Sex: Female
  Weight: 77.1 kg

DRUGS (5)
  1. CRESTOR [Suspect]
     Route: 048
  2. NAPROXEN [Concomitant]
  3. PAXIL [Concomitant]
  4. PROPRANOLOL [Concomitant]
  5. MAPAP [Concomitant]

REACTIONS (1)
  - SINUSITIS [None]
